FAERS Safety Report 5232178-4 (Version None)
Quarter: 2007Q1

REPORT INFORMATION
  Report Type: 
  Country: None (occurrence: None)
  Receive Date: 20070205
  Receipt Date: 20070124
  Transmission Date: 20070707
  Serious: Yes (Other)
  Sender: FDA-Public Use
  Company Number: 235647

PATIENT
  Age: 90 Year
  Sex: Female

DRUGS (1)
  1. BEVACIZUMAB (BEVACIZUMAB) PWDR + SOLVENT, INFUSION SOLN, 100MG [Suspect]
     Indication: DRUG USE FOR UNKNOWN INDICATION
     Dosage: INTRAVITREAL

REACTIONS (4)
  - BLINDNESS [None]
  - CHOROIDAL NEOVASCULARISATION [None]
  - DETACHMENT OF RETINAL PIGMENT EPITHELIUM [None]
  - HAEMORRHAGE [None]
